FAERS Safety Report 24669450 (Version 1)
Quarter: 2024Q4

REPORT INFORMATION
  Report Type: Spontaneous
  Country: RU (occurrence: RU)
  Receive Date: 20241127
  Receipt Date: 20241127
  Transmission Date: 20250114
  Serious: Yes (Other)
  Sender: JOHNSON AND JOHNSON
  Company Number: RU-BAYER-2024A165300

PATIENT
  Sex: Female

DRUGS (1)
  1. XARELTO [Suspect]
     Active Substance: RIVAROXABAN
     Indication: Superficial vein thrombosis
     Route: 048

REACTIONS (5)
  - Fibrin D dimer increased [Unknown]
  - Malaise [Unknown]
  - Peripheral swelling [Unknown]
  - Pain in extremity [Unknown]
  - Off label use [Unknown]
